FAERS Safety Report 7401760-8 (Version None)
Quarter: 2011Q2

REPORT INFORMATION
  Report Type: 
  Country: None (occurrence: None)
  Receive Date: 20110408
  Receipt Date: 20110406
  Transmission Date: 20111010
  Serious: No
  Sender: FDA-Public Use
  Company Number: US-PFIZER INC-2011076607

PATIENT
  Sex: Female

DRUGS (7)
  1. LYRICA [Concomitant]
     Indication: NERVE INJURY
     Dosage: 100 MG, 3X/DAY
  2. ELMIRON [Concomitant]
     Indication: ENDOMETRIAL DISORDER
     Dosage: 100 MG, 3X/DAY
  3. CYCLOSPORINE [Concomitant]
     Indication: DRY EYE
     Dosage: UNK
  4. PROTONIX [Suspect]
     Indication: GASTROOESOPHAGEAL REFLUX DISEASE
     Dosage: 40 MG, 2X/DAY
     Route: 048
     Dates: start: 20110101, end: 20110101
  5. EVOXAC [Concomitant]
     Indication: DRY MOUTH
     Dosage: 100 MG, UNK
  6. SYNTHROID [Concomitant]
     Indication: THYROID DISORDER
     Dosage: 25 MG, 1X/DAY
  7. ROPINIROLE [Concomitant]
     Indication: RESTLESS LEGS SYNDROME
     Dosage: 0.5 MG, 2X/DAY

REACTIONS (1)
  - DRUG SCREEN POSITIVE [None]
